FAERS Safety Report 13074511 (Version 1)
Quarter: 2016Q4

REPORT INFORMATION
  Report Type: Report from Study
  Country: US (occurrence: US)
  Receive Date: 20161230
  Receipt Date: 20161230
  Transmission Date: 20170207
  Serious: Yes (Other)
  Sender: FDA-Public Use
  Company Number: US-AMGEN-USASL2016183851

PATIENT
  Age: 49 Year
  Sex: Male

DRUGS (2)
  1. ENBREL [Suspect]
     Active Substance: ETANERCEPT
     Dosage: UNK, Q2WK
     Route: 065
     Dates: end: 201612
  2. ENBREL [Suspect]
     Active Substance: ETANERCEPT
     Indication: ANKYLOSING SPONDYLITIS
     Dosage: UNK UNK, Q2WK
     Route: 065

REACTIONS (15)
  - Burning sensation [Unknown]
  - Restlessness [Unknown]
  - Cold sweat [Unknown]
  - Eye injury [Unknown]
  - Blood pressure decreased [Recovered/Resolved]
  - Epistaxis [Recovered/Resolved]
  - Muscle spasms [Unknown]
  - Facial bones fracture [Unknown]
  - Skin discolouration [Unknown]
  - Hyperhidrosis [Unknown]
  - Anaemia [Not Recovered/Not Resolved]
  - Intentional product misuse [Unknown]
  - Fall [Unknown]
  - Loss of consciousness [Unknown]
  - Head injury [Unknown]

NARRATIVE: CASE EVENT DATE: 201612
